FAERS Safety Report 12074782 (Version 2)
Quarter: 2016Q1

REPORT INFORMATION
  Report Type: Spontaneous
  Country: IT (occurrence: IT)
  Receive Date: 20160212
  Receipt Date: 20160331
  Transmission Date: 20160526
  Serious: Yes (Other)
  Sender: FDA-Public Use
  Company Number: IT-SA-2016SA021631

PATIENT
  Age: 36 Year
  Sex: Male

DRUGS (7)
  1. CLEXANE [Suspect]
     Active Substance: ENOXAPARIN SODIUM
     Indication: THROMBOSIS
     Route: 058
     Dates: start: 20160116, end: 20160122
  2. OXACILLIN [Concomitant]
     Active Substance: OXACILLIN SODIUM
     Route: 065
  3. ZYVOX [Concomitant]
     Active Substance: LINEZOLID
     Route: 042
  4. LASIX [Concomitant]
     Active Substance: FUROSEMIDE
     Dosage: DOSE:1 UNIT(S)
     Route: 042
     Dates: start: 20160109, end: 20160202
  5. RIFAMPICIN [Concomitant]
     Active Substance: RIFAMPIN
     Route: 042
  6. URBASON [Concomitant]
     Active Substance: METHYLPREDNISOLONE
     Route: 042
  7. PANTORC [Concomitant]
     Active Substance: PANTOPRAZOLE SODIUM
     Route: 042
     Dates: start: 20160109, end: 20160202

REACTIONS (2)
  - Bronchospasm [Recovered/Resolved]
  - Erythema [Recovered/Resolved]

NARRATIVE: CASE EVENT DATE: 20160117
